FAERS Safety Report 18610268 (Version 1)
Quarter: 2020Q4

REPORT INFORMATION
  Report Type: Spontaneous
  Country: FR (occurrence: FR)
  Receive Date: 20201214
  Receipt Date: 20201214
  Transmission Date: 20210114
  Serious: Yes (Other)
  Sender: FDA-Public Use
  Company Number: FR-TEVA-2020-FR-1857211

PATIENT
  Age: 21 Year
  Sex: Male

DRUGS (1)
  1. TRAMADOL BASE [Suspect]
     Active Substance: TRAMADOL
     Indication: HEADACHE
     Route: 048
     Dates: start: 2015, end: 201911

REACTIONS (2)
  - Drug abuse [Recovering/Resolving]
  - Dependence [Not Recovered/Not Resolved]

NARRATIVE: CASE EVENT DATE: 2015
